FAERS Safety Report 12719062 (Version 3)
Quarter: 2016Q4

REPORT INFORMATION
  Report Type: Report from Study
  Country: US (occurrence: US)
  Receive Date: 20160907
  Receipt Date: 20161021
  Transmission Date: 20170207
  Serious: Yes (Hospitalization, Other)
  Sender: FDA-Public Use
  Company Number: US-AMGEN-USASL2016114070

PATIENT
  Age: 74 Year
  Sex: Female

DRUGS (5)
  1. METHOTREXATE. [Concomitant]
     Active Substance: METHOTREXATE
     Dosage: UNK
  2. PREDNISONE. [Concomitant]
     Active Substance: PREDNISONE
     Dosage: 8 MG, UNK
  3. ENBREL [Suspect]
     Active Substance: ETANERCEPT
     Indication: RHEUMATOID ARTHRITIS
     Dosage: 25 MG, 2 TIMES/WK
     Route: 065
  4. ASPIRIN. [Concomitant]
     Active Substance: ASPIRIN
     Dosage: UNK
  5. NAPROXEN. [Concomitant]
     Active Substance: NAPROXEN
     Dosage: UNK

REACTIONS (30)
  - Knee arthroplasty [Unknown]
  - Malaise [Unknown]
  - Myalgia [Unknown]
  - Joint swelling [Unknown]
  - Mobility decreased [Unknown]
  - Adverse drug reaction [Unknown]
  - Intervertebral disc protrusion [Unknown]
  - Spinal operation [Unknown]
  - Peripheral swelling [Unknown]
  - Fall [Unknown]
  - Pain [Unknown]
  - Anxiety [Unknown]
  - Injection site pain [Unknown]
  - Incorrect product storage [Unknown]
  - Headache [Unknown]
  - Activities of daily living impaired [Unknown]
  - Muscular weakness [Unknown]
  - Pharyngeal oedema [Not Recovered/Not Resolved]
  - Drug dose omission [Unknown]
  - Heart rate increased [Unknown]
  - Chest pain [Unknown]
  - Poor quality drug administered [Unknown]
  - Arthralgia [Unknown]
  - Cardiac disorder [Unknown]
  - Muscle spasms [Unknown]
  - Inappropriate schedule of drug administration [Unknown]
  - Monoplegia [Unknown]
  - Hypotonia [Unknown]
  - Gastric disorder [Unknown]
  - Feeling abnormal [Unknown]

NARRATIVE: CASE EVENT DATE: 2008
